FAERS Safety Report 7017127-0 (Version None)
Quarter: 2010Q3

REPORT INFORMATION
  Report Type: 
  Country: None (occurrence: None)
  Receive Date: 20100928
  Receipt Date: 20100915
  Transmission Date: 20110219
  Serious: No
  Sender: FDA-Public Use
  Company Number: US-BIOGENIDEC-2010BI010182

PATIENT
  Sex: Female

DRUGS (3)
  1. TYSABRI [Suspect]
     Indication: MULTIPLE SCLEROSIS
     Route: 042
     Dates: start: 20061101
  2. TYSABRI [Suspect]
     Route: 042
     Dates: start: 20060901, end: 20100401
  3. TYSABRI [Suspect]
     Route: 042
     Dates: start: 20100901

REACTIONS (3)
  - ARTHRALGIA [None]
  - MALAISE [None]
  - SERUM SICKNESS [None]
